FAERS Safety Report 6775198-0 (Version None)
Quarter: 2010Q2

REPORT INFORMATION
  Report Type: 
  Country: None (occurrence: None)
  Receive Date: 20100617
  Receipt Date: 20100608
  Transmission Date: 20101027
  Serious: Yes (Other)
  Sender: FDA-Public Use
  Company Number: GB-PFIZER INC-2010044901

PATIENT
  Age: 62 Year

DRUGS (3)
  1. CHAMPIX [Suspect]
     Indication: SMOKING CESSATION THERAPY
     Dosage: 0.5 MG, UNK
     Route: 048
     Dates: start: 20100226, end: 20100303
  2. OMEPRAZOLE [Concomitant]
     Dosage: 20 MG, UNK
     Route: 048
     Dates: start: 20060701
  3. SIMVASTATIN [Concomitant]
     Dosage: 40 MG, UNK
     Route: 048
     Dates: start: 20061201

REACTIONS (3)
  - CONDITION AGGRAVATED [None]
  - DEPRESSED MOOD [None]
  - IRRITABILITY [None]
